FAERS Safety Report 6725576-0 (Version None)
Quarter: 2010Q2

REPORT INFORMATION
  Report Type: 
  Country: None (occurrence: None)
  Receive Date: 20100514
  Receipt Date: 20100503
  Transmission Date: 20101027
  Serious: Yes (Other)
  Sender: FDA-Public Use
  Company Number: NL-PFIZER INC-2010055711

PATIENT
  Sex: Female

DRUGS (1)
  1. DETRUSITOL SR [Suspect]
     Dosage: 4 MG, 1X/DAY
     Dates: start: 20100412, end: 20100502

REACTIONS (1)
  - BLOOD GLUCOSE INCREASED [None]
